FAERS Safety Report 9087040 (Version 1)
Quarter: 2013Q1

REPORT INFORMATION
  Report Type: Spontaneous
  Country: FR (occurrence: FR)
  Receive Date: 20130131
  Receipt Date: 20130131
  Transmission Date: 20140127
  Serious: Yes (Hospitalization)
  Sender: FDA-Public Use
  Company Number: FR-PFIZER INC-2013031179

PATIENT
  Age: 67 Year
  Sex: Female

DRUGS (5)
  1. TAZOCILLINE [Suspect]
     Indication: BACTERIAL SEPSIS
     Dosage: 4 G, 3X/DAY
     Route: 042
     Dates: start: 20110523, end: 20110614
  2. VANCOMYCIN HCL [Suspect]
     Indication: BACTERIAL SEPSIS
     Dosage: UNK
     Route: 042
     Dates: start: 20110530, end: 20110615
  3. ERYTHROMYCIN [Suspect]
     Indication: IMPAIRED GASTRIC EMPTYING
     Dosage: UNK
     Route: 042
     Dates: start: 20110527, end: 20110604
  4. AZITHROMYCINE TEVA 250 MG TABLET [Suspect]
     Indication: IMPAIRED GASTRIC EMPTYING
     Dosage: UNK
     Route: 042
     Dates: start: 20110609, end: 20110614
  5. IMOVANE [Concomitant]
     Dosage: 7.5 MG, 1X/DAY
     Route: 048

REACTIONS (1)
  - Drug reaction with eosinophilia and systemic symptoms [Recovered/Resolved]
